FAERS Safety Report 5345933-7 (Version None)
Quarter: 2007Q2

REPORT INFORMATION
  Report Type: 
  Country: None (occurrence: None)
  Receive Date: 20070426
  Receipt Date: 20061025
  Transmission Date: 20071010
  Serious: Yes (Other)
  Sender: FDA-Public Use
  Company Number: US-JNJFOC-20061005998

PATIENT
  Age: 88 Year
  Sex: Female
  Weight: 65.7716 kg

DRUGS (5)
  1. RAZADYNE [Suspect]
     Indication: DEMENTIA ALZHEIMER'S TYPE
     Dosage: 8 MG, 2 IN 1 DAY, ORAL
     Route: 048
  2. NAMENDA [Concomitant]
  3. SPIROLACTONE (SPIRONOLACTONE) [Concomitant]
  4. L-THYROXINE (LEVOTHYROXINE SODIUM) [Concomitant]
  5. PREMARIN [Concomitant]

REACTIONS (5)
  - FEELING ABNORMAL [None]
  - HEADACHE [None]
  - REGRESSIVE BEHAVIOUR [None]
  - SLEEP DISORDER [None]
  - WEIGHT DECREASED [None]
